FAERS Safety Report 5752604-1 (Version None)
Quarter: 2008Q2

REPORT INFORMATION
  Report Type: 
  Country: None (occurrence: None)
  Receive Date: 20080529
  Receipt Date: 20080522
  Transmission Date: 20081010
  Serious: Yes (Hospitalization)
  Sender: FDA-Public Use
  Company Number: DE-JNJFOC-20080504978

PATIENT
  Sex: Male
  Weight: 108 kg

DRUGS (5)
  1. PALIPERIDONE [Suspect]
     Indication: SCHIZOPHRENIA
     Route: 048
  2. LORAZEPAM [Concomitant]
     Indication: ANXIETY
     Route: 048
  3. SIMVASTATIN [Concomitant]
     Indication: HYPERCHOLESTEROLAEMIA
     Route: 048
  4. PIPAMPERONE [Concomitant]
     Indication: INSOMNIA
     Route: 048
  5. OLANZAPINE [Concomitant]
     Indication: PSYCHOTIC DISORDER
     Route: 048

REACTIONS (4)
  - ANXIETY [None]
  - DELUSION [None]
  - HALLUCINATION, AUDITORY [None]
  - INSOMNIA [None]
